FAERS Safety Report 7848856 (Version 3)
Quarter: 2016Q3

REPORT INFORMATION
  Report Type: Report from Study
  Country: BR (occurrence: BR)
  Receive Date: 20110310
  Receipt Date: 20160708
  Transmission Date: 20161109
  Serious: Yes (Other)
  Sender: FDA-Public Use
  Company Number: BR-AMGEN-BRASP2011011790

PATIENT
  Age: 42 Year
  Sex: Male
  Weight: 77 kg

DRUGS (4)
  1. ETANERCEPT [Suspect]
     Active Substance: ETANERCEPT
     Indication: RHEUMATOID ARTHRITIS
     Dosage: 50 MG, QWK
     Route: 058
     Dates: start: 20100903
  2. EUTHYROX [Concomitant]
     Active Substance: LEVOTHYROXINE SODIUM
     Dosage: 50 MG, 1X/DAY
     Dates: start: 2005
  3. EUTHYROX [Concomitant]
     Active Substance: LEVOTHYROXINE SODIUM
     Indication: HYPOTHYROIDISM
     Dosage: 50 MG, 1X/DAY
  4. PANTOZOL                           /01263202/ [Concomitant]
     Indication: GASTRITIS
     Dosage: 20 MG, QD
     Dates: start: 201010

REACTIONS (9)
  - Infection [Unknown]
  - Food poisoning [Recovered/Resolved]
  - Speech disorder [Recovered/Resolved]
  - Neutrophil percentage increased [Unknown]
  - Pyrexia [Recovered/Resolved]
  - Muscle rigidity [Recovered/Resolved]
  - Immunodeficiency [Recovered/Resolved]
  - Myalgia [Recovered/Resolved]
  - Incorrect product storage [Unknown]

NARRATIVE: CASE EVENT DATE: 201102
